FAERS Safety Report 6986089-4 (Version None)
Quarter: 2010Q3

REPORT INFORMATION
  Report Type: 
  Country: None (occurrence: None)
  Receive Date: 20100910
  Receipt Date: 20100901
  Transmission Date: 20110219
  Serious: Yes (Other)
  Sender: FDA-Public Use
  Company Number: 688120

PATIENT
  Age: 59 Year
  Sex: Male

DRUGS (3)
  1. CYTARABINE [Suspect]
     Indication: CHEMOTHERAPY
  2. IDARUBICIN HCL [Suspect]
     Indication: CHEMOTHERAPY
  3. LAMIVUDINE [Suspect]
     Indication: PRODUCT USED FOR UNKNOWN INDICATION
     Dosage: 100 MG MILLIGRAM (S) (DAY)

REACTIONS (1)
  - HEPATITIS B [None]
